FAERS Safety Report 6185777-X (Version None)
Quarter: 2009Q2

REPORT INFORMATION
  Report Type: 
  Country: None (occurrence: None)
  Receive Date: 20090511
  Receipt Date: 20090504
  Transmission Date: 20091009
  Serious: Yes (Death, Hospitalization)
  Sender: FDA-Public Use
  Company Number: US-KINGPHARMUSA00001-K200900379

PATIENT
  Age: 70 Year
  Sex: Female

DRUGS (4)
  1. ALTACE [Suspect]
     Dosage: 2.5 MG, QD
  2. METFORMIN HCL [Suspect]
  3. GLYBURIDE [Suspect]
  4. INVESTIGATIONAL DRUG [Suspect]
     Dosage: UNK
     Dates: end: 20080820

REACTIONS (8)
  - ACTIVITIES OF DAILY LIVING IMPAIRED [None]
  - CARDIAC DEATH [None]
  - CONFUSIONAL STATE [None]
  - DISORIENTATION [None]
  - FAILURE TO THRIVE [None]
  - FALL [None]
  - HALLUCINATION [None]
  - HYPOGLYCAEMIA [None]
